FAERS Safety Report 23904047 (Version 3)
Quarter: 2024Q3

REPORT INFORMATION
  Report Type: Other
  Country: IT (occurrence: IT)
  Receive Date: 20240527
  Receipt Date: 20240710
  Transmission Date: 20241017
  Serious: Yes (Death, Life-Threatening)
  Sender: INCYTE
  Company Number: None

PATIENT

DRUGS (2)
  1. RUXOLITINIB [Suspect]
     Active Substance: RUXOLITINIB
     Indication: Myelofibrosis
     Dosage: 20 MG, BID (20MG 2 VOLTE AL D?)
     Route: 048
     Dates: start: 20190606, end: 20240412
  2. PERINDOPRIL [Concomitant]
     Active Substance: PERINDOPRIL
     Indication: Product used for unknown indication
     Dosage: UNK
     Route: 065

REACTIONS (2)
  - Adenosquamous cell lung cancer [Fatal]
  - Second primary malignancy [Fatal]

NARRATIVE: CASE EVENT DATE: 20240312
